FAERS Safety Report 5169732-4 (Version None)
Quarter: 2006Q4

REPORT INFORMATION
  Report Type: 
  Country: None (occurrence: None)
  Receive Date: 20061212
  Receipt Date: 20061201
  Transmission Date: 20070319
  Serious: Yes (Other)
  Sender: FDA-Public Use
  Company Number: PHEH2006US14836

PATIENT
  Age: 54 Year
  Sex: Female

DRUGS (1)
  1. FEMARA [Suspect]

REACTIONS (4)
  - HUMERUS FRACTURE [None]
  - MEDICAL DEVICE CHANGE [None]
  - MEDICAL DEVICE IMPLANTATION [None]
  - OSTEOMYELITIS [None]
